FAERS Safety Report 24704165 (Version 1)
Quarter: 2024Q4

REPORT INFORMATION
  Report Type: Spontaneous
  Country: PT (occurrence: PT)
  Receive Date: 20241206
  Receipt Date: 20241206
  Transmission Date: 20250114
  Serious: Yes (Other)
  Sender: AUROBINDO
  Company Number: PT-AGUETTANT-2024001558

PATIENT
  Age: 54 Year
  Sex: Female

DRUGS (4)
  1. HYDROCORTISONE [Suspect]
     Active Substance: HYDROCORTISONE
     Indication: Anaphylactic shock
     Dosage: 200 MILLIGRAM
     Route: 042
  2. EPINEPHRINE [Suspect]
     Active Substance: EPINEPHRINE
     Indication: Anaphylactic shock
     Dosage: 0.5 MILLIGRAM, 3 TIMES A DAY
     Route: 030
  3. CLEMASTINE [Suspect]
     Active Substance: CLEMASTINE
     Indication: Anaphylactic shock
     Dosage: 2 MILLIGRAM
     Route: 042
  4. METHYLPREDNISOLONE [Suspect]
     Active Substance: METHYLPREDNISOLONE
     Indication: Anaphylactic shock
     Dosage: 125 MILLIGRAM
     Route: 042

REACTIONS (1)
  - Drug ineffective [Recovered/Resolved]
